FAERS Safety Report 10085170 (Version 3)
Quarter: 2014Q2

REPORT INFORMATION
  Report Type: Spontaneous
  Country: BR (occurrence: BR)
  Receive Date: 20140417
  Receipt Date: 20140528
  Transmission Date: 20141212
  Serious: Yes (Other)
  Sender: FDA-Public Use
  Company Number: BR-ABBVIE-14P-020-1227390-00

PATIENT
  Age: 33 Year
  Sex: Male

DRUGS (6)
  1. DEPAKOTE [Suspect]
     Indication: EPILEPSY
     Dosage: DAILY
     Route: 048
  2. NEOZINE [Suspect]
     Indication: AUTISM
     Dosage: AT BEDTIME
     Route: 048
     Dates: start: 2011, end: 20140325
  3. NEOZINE [Suspect]
     Indication: EPILEPSY
  4. AMPLICTIL [Suspect]
     Indication: PRODUCT USED FOR UNKNOWN INDICATION
     Dates: start: 20140325
  5. PHENYTOIN [Suspect]
     Indication: EPILEPSY
     Route: 048
  6. TEGRETOL [Suspect]
     Indication: EPILEPSY
     Dosage: DAILY
     Route: 048

REACTIONS (3)
  - Drug dependence [Recovered/Resolved]
  - Convulsion [Recovered/Resolved]
  - Drug ineffective [Unknown]
